FAERS Safety Report 9231981 (Version 1)
Quarter: 2013Q2

REPORT INFORMATION
  Report Type: Spontaneous
  Country: US (occurrence: US)
  Receive Date: 20130415
  Receipt Date: 20130415
  Transmission Date: 20140414
  Serious: No
  Sender: FDA-Public Use
  Company Number: US-PFIZER INC-2013115984

PATIENT
  Age: 81 Year
  Sex: Male
  Weight: 99.77 kg

DRUGS (1)
  1. VIAGRA [Suspect]
     Indication: ERECTILE DYSFUNCTION
     Dosage: TWO TABLETS OF 50MG, AS NEEDED
     Dates: start: 201304, end: 20130410

REACTIONS (1)
  - Drug ineffective [Unknown]
